FAERS Safety Report 12254882 (Version 1)
Quarter: 2016Q2

REPORT INFORMATION
  Report Type: Spontaneous
  Country: IN (occurrence: IN)
  Receive Date: 20160411
  Receipt Date: 20160411
  Transmission Date: 20160815
  Serious: Yes (Other)
  Sender: FDA-Public Use
  Company Number: IN-DEPOMED, INC.-IN-2016DEP009301

PATIENT

DRUGS (2)
  1. PARACETAMOL [Suspect]
     Active Substance: ACETAMINOPHEN
     Indication: BACK PAIN
     Dosage: UNK DF, UNK
  2. DICLOFENAC POTASSIUM. [Suspect]
     Active Substance: DICLOFENAC POTASSIUM
     Indication: BACK PAIN
     Dosage: UNK DF, UNK

REACTIONS (6)
  - Normochromic normocytic anaemia [Unknown]
  - Blood pressure increased [Unknown]
  - Breast cancer metastatic [Unknown]
  - Back pain [Unknown]
  - Oedema peripheral [Unknown]
  - Acute kidney injury [Unknown]
